FAERS Safety Report 22654199 (Version 1)
Quarter: 2023Q2

REPORT INFORMATION
  Report Type: Other
  Country: US (occurrence: None)
  Receive Date: 20230629
  Receipt Date: 20230629
  Transmission Date: 20230721
  Serious: Yes (Other)
  Sender: FDA-Public Use
  Company Number: US-ROCHE-3372834

PATIENT

DRUGS (10)
  1. BEVACIZUMAB [Suspect]
     Active Substance: BEVACIZUMAB
     Indication: Metastatic neoplasm
     Dosage: LEVEL -1, LEVEL 2, LEVEL 5, LEVEL 8 (28 DAY SCHEDULE)
     Route: 042
  2. BEVACIZUMAB [Suspect]
     Active Substance: BEVACIZUMAB
     Indication: Neoplasm
     Dosage: LEVEL 0, LEVEL 9 (28 DAY SCHEDULE)
     Route: 042
  3. BEVACIZUMAB [Suspect]
     Active Substance: BEVACIZUMAB
     Dosage: LEVEL 1, LEVEL 4, LEVEL 7, LEVEL 10 (28 DAY SCHEDULE)
     Route: 042
  4. BEVACIZUMAB [Suspect]
     Active Substance: BEVACIZUMAB
     Dosage: LEVEL 3, LEVEL 6 (28 DAY SCHEDULE)
     Route: 042
  5. TEMSIROLIMUS [Suspect]
     Active Substance: TEMSIROLIMUS
     Indication: Metastatic neoplasm
     Dosage: LEVEL -1, 0 AND LEVEL 1
     Route: 042
  6. TEMSIROLIMUS [Suspect]
     Active Substance: TEMSIROLIMUS
     Indication: Neoplasm
     Dosage: LEVEL 2, 3 AND 4
     Route: 042
  7. TEMSIROLIMUS [Suspect]
     Active Substance: TEMSIROLIMUS
     Dosage: LEVEL 5, 6 AND 7
     Route: 042
  8. TEMSIROLIMUS [Suspect]
     Active Substance: TEMSIROLIMUS
     Dosage: LEVEL 8, 9 AND 10
     Route: 042
  9. VALPROIC ACID [Suspect]
     Active Substance: VALPROIC ACID
     Indication: Metastatic neoplasm
     Dosage: ROUNDED TO NEAREST 250 MG DAILY (LEVEL -1, 0, 1, 2, 5, 8, AND 9)
     Route: 048
  10. VALPROIC ACID [Suspect]
     Active Substance: VALPROIC ACID
     Indication: Neoplasm
     Dosage: ROUNDED TO NEAREST 250 MG DAILY (ON LEVEL 3, 4, 6, 7 AND 10)
     Route: 048

REACTIONS (112)
  - Cerebral ischaemia [Unknown]
  - Dizziness [Unknown]
  - Anaemia [Unknown]
  - Intestinal perforation [Unknown]
  - Lipase increased [Unknown]
  - Hyperglycaemia [Unknown]
  - Hypertriglyceridaemia [Unknown]
  - Infection [Unknown]
  - Lymphopenia [Unknown]
  - Intestinal obstruction [Unknown]
  - Neutropenia [Unknown]
  - Asthenia [Unknown]
  - Thrombocytopenia [Unknown]
  - Radiation injury [Unknown]
  - Perirectal abscess [Unknown]
  - Pericoronitis [Unknown]
  - Neuropathy peripheral [Unknown]
  - Abdominal pain [Unknown]
  - Acne [Unknown]
  - Decreased appetite [Unknown]
  - Basophilia [Unknown]
  - Oedema peripheral [Unknown]
  - Vaginal haemorrhage [Unknown]
  - Chest pain [Unknown]
  - Cough [Unknown]
  - Confusional state [Unknown]
  - Constipation [Unknown]
  - Cognitive disorder [Unknown]
  - Platelet count decreased [Unknown]
  - Dermatitis [Unknown]
  - Diarrhoea [Unknown]
  - Gallbladder oedema [Unknown]
  - Dry eye [Unknown]
  - Dysgeusia [Unknown]
  - Dyspnoea [Unknown]
  - Dysuria [Unknown]
  - Oedema [Unknown]
  - Alanine aminotransferase increased [Unknown]
  - Blood alkaline phosphatase increased [Unknown]
  - Amylase increased [Unknown]
  - Aspartate aminotransferase increased [Unknown]
  - Blood bilirubin increased [Unknown]
  - Blood urea increased [Unknown]
  - Blood creatinine increased [Unknown]
  - Fibrin D dimer increased [Unknown]
  - Blood lactate dehydrogenase increased [Unknown]
  - Epistaxis [Unknown]
  - Hypoaesthesia [Unknown]
  - Fall [Unknown]
  - Fatigue [Unknown]
  - Pyrexia [Unknown]
  - Fistula [Unknown]
  - Gait disturbance [Unknown]
  - Cholelithiasis [Unknown]
  - Glycosuria [Unknown]
  - Palmar-plantar erythrodysaesthesia syndrome [Unknown]
  - Headache [Unknown]
  - Haematuria [Unknown]
  - Haemoglobinuria [Unknown]
  - Haemorrhage [Unknown]
  - Hypercalcaemia [Unknown]
  - Hypercholesterolaemia [Unknown]
  - Hyperkalaemia [Unknown]
  - Hypertension [Unknown]
  - Hypernatraemia [Unknown]
  - Hyperphosphataemia [Unknown]
  - Hypoalbuminaemia [Unknown]
  - Hypocalcaemia [Unknown]
  - Hypokalaemia [Unknown]
  - Hypomagnesaemia [Unknown]
  - Hyponatraemia [Unknown]
  - Hypophosphataemia [Unknown]
  - Hypothermia [Unknown]
  - Dyspepsia [Unknown]
  - Insomnia [Unknown]
  - Pain in jaw [Unknown]
  - Ketonuria [Unknown]
  - Leukopenia [Unknown]
  - Lip infection [Unknown]
  - Malaise [Unknown]
  - Mucosal inflammation [Unknown]
  - Myositis [Unknown]
  - Myalgia [Unknown]
  - Nausea [Unknown]
  - Neutrophilia [Unknown]
  - Pain [Unknown]
  - Pneumonitis [Unknown]
  - Bacterial test positive [Unknown]
  - Bilirubin urine present [Unknown]
  - Urinary casts present [Unknown]
  - Glucose urine present [Unknown]
  - White blood cells urine positive [Unknown]
  - Urine analysis abnormal [Unknown]
  - Red blood cells urine positive [Unknown]
  - Crystal urine present [Unknown]
  - White blood cells urine positive [Unknown]
  - Urobilinogen urine increased [Unknown]
  - Presyncope [Unknown]
  - Proteinuria [Unknown]
  - Rash pruritic [Unknown]
  - Pruritus [Unknown]
  - Rash [Unknown]
  - Sinusitis [Unknown]
  - Tachycardia [Unknown]
  - Nail disorder [Unknown]
  - Back pain [Unknown]
  - Urinary tract infection [Unknown]
  - Photopsia [Unknown]
  - Vomiting [Unknown]
  - Limb injury [Unknown]
  - Weight decreased [Unknown]
  - Dry mouth [Unknown]
